FAERS Safety Report 8358937-7 (Version None)
Quarter: 2012Q2

REPORT INFORMATION
  Report Type: 
  Country: None (occurrence: None)
  Receive Date: 20120515
  Receipt Date: 20120502
  Transmission Date: 20120825
  Serious: No
  Sender: FDA-Public Use
  Company Number: US-BIOGENIDEC-2012BI015805

PATIENT
  Age: 44 Year
  Sex: Female

DRUGS (1)
  1. TYSABRI [Suspect]
     Indication: MULTIPLE SCLEROSIS
     Route: 042
     Dates: start: 20110719

REACTIONS (6)
  - ARTHRALGIA [None]
  - HYPERTENSION [None]
  - PAIN IN EXTREMITY [None]
  - BACK PAIN [None]
  - MULTIPLE SCLEROSIS [None]
  - HEADACHE [None]
